FAERS Safety Report 24769466 (Version 1)
Quarter: 2024Q4

REPORT INFORMATION
  Report Type: Spontaneous
  Country: GB (occurrence: GB)
  Receive Date: 20241224
  Receipt Date: 20241224
  Transmission Date: 20250115
  Serious: Yes (Other)
  Sender: AUROBINDO
  Company Number: GB-MHRA-MED-202412101956020650-QTBHS

PATIENT
  Age: 73 Year
  Sex: Male

DRUGS (3)
  1. AMOXICILLIN\CLAVULANATE POTASSIUM [Suspect]
     Active Substance: AMOXICILLIN\CLAVULANATE POTASSIUM
     Indication: Adverse drug reaction
     Dosage: 500 MILLIGRAM, 3 TIMES A DAY
     Route: 065
     Dates: start: 20240921, end: 20240927
  2. PREDNISOLONE [Suspect]
     Active Substance: PREDNISOLONE
     Indication: Adverse drug reaction
     Dosage: UNK
     Route: 065
     Dates: start: 20241011
  3. LANSOPRAZOLE [Suspect]
     Active Substance: LANSOPRAZOLE
     Indication: Tonsillar hypertrophy
     Dosage: 15 MILLIGRAM
     Route: 065
     Dates: start: 20241012, end: 20241015

REACTIONS (11)
  - Diarrhoea [Recovered/Resolved]
  - Lethargy [Recovered/Resolved]
  - Joint swelling [Recovering/Resolving]
  - Discoloured vomit [Recovered/Resolved]
  - Gastrointestinal pain [Recovered/Resolved]
  - Eye pain [Recovering/Resolving]
  - Headache [Recovered/Resolved]
  - Constipation [Recovered/Resolved]
  - Confusional state [Recovered/Resolved]
  - Pallor [Recovering/Resolving]
  - Skin discolouration [Recovered/Resolved]

NARRATIVE: CASE EVENT DATE: 20240922
